FAERS Safety Report 9005897 (Version 1)
Quarter: 2013Q1

REPORT INFORMATION
  Report Type: Spontaneous
  Country: US (occurrence: US)
  Receive Date: 20130109
  Receipt Date: 20130109
  Transmission Date: 20140127
  Serious: Yes (Death)
  Sender: FDA-Public Use
  Company Number: US-AMGEN-USASP2013000715

PATIENT
  Age: 93 Year
  Sex: Female

DRUGS (9)
  1. ENBREL [Suspect]
     Indication: RHEUMATOID ARTHRITIS
     Dosage: 50 MG, QWK
     Route: 058
  2. WARFARIN [Concomitant]
     Dosage: 2 MG, UNK
  3. DIGOXIN [Concomitant]
     Dosage: 0.125 MG, UNK
  4. PLAVIX [Concomitant]
     Dosage: 75 MG, UNK
  5. SIMVASTATIN [Concomitant]
     Dosage: 40 MG, UNK
  6. PANTOPRAZOLE [Concomitant]
     Dosage: 20 MG, UNK
  7. FUROSEMIDE [Concomitant]
     Dosage: 40 MG/4 ML, SOLUTION
  8. POTASSIUM [Concomitant]
     Dosage: 75 MG, UNK
  9. DILTIAZEM [Concomitant]
     Dosage: 180MG/24

REACTIONS (1)
  - Death [Fatal]
